FAERS Safety Report 5759420-5 (Version None)
Quarter: 2008Q2

REPORT INFORMATION
  Report Type: 
  Country: None (occurrence: None)
  Receive Date: 20080604
  Receipt Date: 20080604
  Transmission Date: 20081010
  Serious: Yes (Life-Threatening, Hospitalization)
  Sender: FDA-Public Use
  Company Number: None

PATIENT
  Sex: Female
  Weight: 67.1324 kg

DRUGS (1)
  1. DIGITEK 125 MCG TABLET, BERTEK P [Suspect]
     Indication: CARDIAC DISORDER
     Dosage: 1 TABLET 1/DA
     Dates: start: 20080301, end: 20080401

REACTIONS (1)
  - THERAPEUTIC AGENT TOXICITY [None]
